FAERS Safety Report 9648484 (Version 5)
Quarter: 2014Q1

REPORT INFORMATION
  Report Type: Spontaneous
  Country: US (occurrence: US)
  Receive Date: 20131028
  Receipt Date: 20140109
  Transmission Date: 20141002
  Serious: No
  Sender: FDA-Public Use
  Company Number: US-VERTEX PHARMACEUTICALS INC-2013-010481

PATIENT
  Age: 65 Year
  Sex: Male
  Weight: 73.47 kg

DRUGS (8)
  1. INCIVEK [Suspect]
     Indication: HEPATITIS C
     Dosage: 2 DF, TID
     Route: 048
     Dates: start: 20130920
  2. INCIVEK [Suspect]
     Dosage: 3 DF, BID
     Route: 048
  3. RIBAVIRIN [Suspect]
     Indication: HEPATITIS C
     Dosage: 2 DF, TID
     Dates: start: 20130920
  4. RIBAVIRIN [Suspect]
     Dosage: 400 MG AM, 200 MG PM
     Route: 048
     Dates: start: 2013
  5. PEGASYS [Suspect]
     Indication: HEPATITIS C
     Dosage: 180 ?G, QW
     Route: 058
     Dates: start: 20130920
  6. PEGASYS [Suspect]
     Dosage: 135 ?G, QW
     Route: 058
     Dates: start: 20131017
  7. PEGASYS [Suspect]
     Dosage: 180 ?G, QW
     Route: 058
     Dates: start: 201310
  8. PEGASYS [Suspect]
     Dosage: 135 ?G, QW
     Route: 058

REACTIONS (14)
  - Drug dose omission [Unknown]
  - Gastrooesophageal reflux disease [Unknown]
  - Insomnia [Not Recovered/Not Resolved]
  - Weight increased [Not Recovered/Not Resolved]
  - Dizziness [Not Recovered/Not Resolved]
  - Chest discomfort [Not Recovered/Not Resolved]
  - Peripheral coldness [Recovered/Resolved]
  - Anxiety [Recovered/Resolved]
  - Panic attack [Recovered/Resolved]
  - Fatigue [Not Recovered/Not Resolved]
  - Rash [Recovered/Resolved]
  - Haemoglobin decreased [Unknown]
  - Anaemia [Not Recovered/Not Resolved]
  - Rash pruritic [Recovered/Resolved]
